FAERS Safety Report 21942351 (Version 1)
Quarter: 2023Q1

REPORT INFORMATION
  Report Type: Report from Study
  Country: US (occurrence: US)
  Receive Date: 20230202
  Receipt Date: 20230202
  Transmission Date: 20230418
  Serious: No
  Sender: FDA-Public Use
  Company Number: US-EXELIXIS-CABO-22057549

PATIENT
  Age: 62 Year
  Sex: Female

DRUGS (19)
  1. CABOMETYX [Suspect]
     Active Substance: CABOZANTINIB S-MALATE
     Indication: Colon cancer
     Dosage: 20 MG, QD
     Dates: start: 20221001, end: 202210
  2. CABOMETYX [Suspect]
     Active Substance: CABOZANTINIB S-MALATE
     Indication: Anal cancer
  3. CAPECITABINE [Concomitant]
     Active Substance: CAPECITABINE
  4. SOMA [Concomitant]
     Active Substance: CARISOPRODOL
  5. IMMUNOTICS [Concomitant]
  6. KIRKOPLEX [Concomitant]
  7. MENAQUINONE 6 [Concomitant]
     Active Substance: MENAQUINONE 6
  8. VITAMIN D3 [Concomitant]
     Active Substance: CHOLECALCIFEROL
  9. GABA [Concomitant]
     Active Substance: HOMEOPATHICS
  10. DIETARY SUPPLEMENT\HERBALS\MILK THISTLE [Concomitant]
     Active Substance: DIETARY SUPPLEMENT\HERBALS\MILK THISTLE
  11. DPLA [Concomitant]
  12. CHROMIUM [Concomitant]
     Active Substance: CHROMIC CHLORIDE\CHROMIUM
  13. MELATONIN [Concomitant]
     Active Substance: MELATONIN
  14. Elemax [Concomitant]
  15. VITAMIN C [Concomitant]
     Active Substance: ASCORBIC ACID
  16. GAMA E [Concomitant]
  17. NALTREXONE [Concomitant]
     Active Substance: NALTREXONE
  18. ZIMODINE [Concomitant]
  19. ERLOTINIB [Concomitant]
     Active Substance: ERLOTINIB

REACTIONS (2)
  - Vertigo [Unknown]
  - Off label use [Unknown]

NARRATIVE: CASE EVENT DATE: 20221001
